FAERS Safety Report 8322417-5 (Version None)
Quarter: 2012Q2

REPORT INFORMATION
  Report Type: 
  Country: None (occurrence: None)
  Receive Date: 20120430
  Receipt Date: 20120423
  Transmission Date: 20120825
  Serious: Yes (Other)
  Sender: FDA-Public Use
  Company Number: US-AMGEN-USASP2011022337

PATIENT
  Age: 63 Year
  Sex: Female
  Weight: 84.036 kg

DRUGS (17)
  1. FASLODEX [Concomitant]
     Indication: BREAST CANCER METASTATIC
     Dosage: 500 MG, QMO
     Route: 030
  2. VITAMIN D [Concomitant]
     Dosage: 1000 MG, QD
     Route: 042
     Dates: start: 20110429
  3. PRILOSEC [Concomitant]
     Dosage: 20 MG, QD
     Dates: start: 20110412
  4. NEURONTIN [Concomitant]
     Dosage: 300 MG, BID
     Dates: start: 20110401
  5. WELLBUTRIN [Concomitant]
     Dosage: 150 MG, QD
     Dates: start: 20110412
  6. SYNTHROID [Concomitant]
     Dosage: 50 MUG, QD
     Dates: start: 20110412
  7. NORCO [Concomitant]
     Dosage: 10 MG, QD
     Dates: start: 20110505
  8. VITAMIN B-12 [Concomitant]
     Dosage: UNK UNK, QD
     Dates: start: 20110429
  9. CALCIUM [Concomitant]
     Dosage: 1000 MG, QD
     Dates: start: 20110429
  10. XGEVA [Suspect]
     Indication: METASTASES TO BONE
     Dosage: 120 MG, ONE TIME DOSE
     Route: 058
     Dates: start: 20110412, end: 20110412
  11. VANCOMYCIN [Concomitant]
     Indication: OSTEONECROSIS
     Dosage: 3 G, Q6H
     Route: 042
     Dates: start: 20110712, end: 20110818
  12. PRAVACHOL [Concomitant]
     Dosage: 20 MG, QD
     Dates: start: 20110412
  13. WELLBUTRIN [Concomitant]
     Dosage: 150 MG, QD
     Dates: start: 20110429
  14. M.V.I. [Concomitant]
     Dosage: UNK UNK, QD
     Dates: start: 20110429
  15. CYMBALTA [Concomitant]
     Dosage: 60 MG, QD
     Dates: start: 20110429
  16. CLONOPIN [Concomitant]
     Dosage: 0.5 MG, QD
     Dates: start: 20110412
  17. FLAGYL [Concomitant]
     Dosage: 250 MG, QID
     Route: 048
     Dates: start: 20110811

REACTIONS (6)
  - OSTEOMYELITIS [None]
  - OSTEONECROSIS OF JAW [None]
  - BONE PAIN [None]
  - PAIN IN JAW [None]
  - INTERVERTEBRAL DISC DEGENERATION [None]
  - TOOTHACHE [None]
